FAERS Safety Report 11622986 (Version 1)
Quarter: 2015Q4

REPORT INFORMATION
  Report Type: Spontaneous
  Country: US (occurrence: None)
  Receive Date: 20151009
  Receipt Date: 20151009
  Transmission Date: 20160304
  Serious: No
  Sender: FDA-Public Use
  Company Number: None

PATIENT
  Age: 43 Year
  Sex: Female
  Weight: 52.16 kg

DRUGS (4)
  1. TRAZODONE [Concomitant]
     Active Substance: TRAZODONE HYDROCHLORIDE
  2. LATISSE [Suspect]
     Active Substance: BIMATOPROST
     Indication: GROWTH OF EYELASHES
     Dosage: 1 DROP, APPLIED TO A SURFACE, USUALLY THE SKIN
     Dates: start: 20150730, end: 20151006
  3. BUPROPRION [Concomitant]
     Active Substance: BUPROPION
  4. ZYRTEC [Concomitant]
     Active Substance: CETIRIZINE HYDROCHLORIDE

REACTIONS (3)
  - Periorbital fat atrophy [None]
  - Eye irritation [None]
  - Dry eye [None]

NARRATIVE: CASE EVENT DATE: 20151008
